FAERS Safety Report 11253760 (Version 2)
Quarter: 2015Q3

REPORT INFORMATION
  Report Type: Report from Study
  Country: NZ (occurrence: NZ)
  Receive Date: 20150709
  Receipt Date: 20150901
  Transmission Date: 20151125
  Serious: Yes (Death, Other)
  Sender: FDA-Public Use
  Company Number: PHHY2015NZ082347

PATIENT
  Age: 55 Year
  Sex: Male
  Weight: 86 kg

DRUGS (2)
  1. RANITIDINE [Concomitant]
     Active Substance: RANITIDINE\RANITIDINE HYDROCHLORIDE
     Indication: PRODUCT USED FOR UNKNOWN INDICATION
     Dosage: 300 MG, QD
     Route: 048
  2. CLOZARIL [Suspect]
     Active Substance: CLOZAPINE
     Indication: SCHIZOPHRENIA
     Dosage: 700 MG, (200 MG AT MORNING AND 600 MG AT NIGHT)
     Route: 048
     Dates: start: 1988, end: 2015

REACTIONS (6)
  - Chronic obstructive pulmonary disease [Unknown]
  - Pulmonary embolism [Fatal]
  - Deep vein thrombosis [Unknown]
  - Lung infection [Unknown]
  - Pulmonary oedema [Unknown]
  - Thrombosis [Unknown]

NARRATIVE: CASE EVENT DATE: 201505
